FAERS Safety Report 14966340 (Version 2)
Quarter: 2018Q4

REPORT INFORMATION
  Report Type: Report from Study
  Country: None (occurrence: US)
  Receive Date: 20180604
  Receipt Date: 20181022
  Transmission Date: 20190204
  Serious: Yes (Hospitalization, Other)
  Sender: FDA-Public Use
  Company Number: US-ABBVIE-18K-163-2373467-00

PATIENT
  Sex: Male

DRUGS (1)
  1. HUMIRA [Suspect]
     Active Substance: ADALIMUMAB
     Indication: RHEUMATOID ARTHRITIS
     Route: 058

REACTIONS (7)
  - Aneurysm [Unknown]
  - Tooth loss [Unknown]
  - Syncope [Unknown]
  - Gout [Unknown]
  - Cardiac disorder [Unknown]
  - Heart rate decreased [Unknown]
  - Fall [Unknown]

NARRATIVE: CASE EVENT DATE: 2018
